FAERS Safety Report 16061609 (Version 3)
Quarter: 2019Q2

REPORT INFORMATION
  Report Type: Spontaneous
  Country: US (occurrence: US)
  Receive Date: 20190312
  Receipt Date: 20190522
  Transmission Date: 20190711
  Serious: Yes (Other)
  Sender: FDA-Public Use
  Company Number: US-PFIZER INC-2019101870

PATIENT
  Age: 57 Year
  Sex: Female

DRUGS (1)
  1. LORBRENA [Suspect]
     Active Substance: LORLATINIB
     Indication: LUNG CARCINOMA CELL TYPE UNSPECIFIED STAGE IV
     Dosage: UNK

REACTIONS (5)
  - Off label use [Unknown]
  - Increased appetite [Unknown]
  - Product use in unapproved indication [Unknown]
  - Osteoarthritis [Recovering/Resolving]
  - Feeling abnormal [Unknown]
